FAERS Safety Report 10231810 (Version 1)
Quarter: 2014Q2

REPORT INFORMATION
  Report Type: Spontaneous
  Country: SE (occurrence: SE)
  Receive Date: 20140612
  Receipt Date: 20140612
  Transmission Date: 20141212
  Serious: Yes (Hospitalization, Disabling)
  Sender: FDA-Public Use
  Company Number: SE-ROCHE-1417112

PATIENT
  Age: 67 Year
  Sex: Male

DRUGS (8)
  1. LUCENTIS [Suspect]
     Indication: DIABETIC RETINOPATHY
     Route: 050
     Dates: start: 20140129, end: 20140129
  2. LANTUS [Concomitant]
  3. TROMBYL [Concomitant]
  4. SALURES [Concomitant]
  5. ATACAND [Concomitant]
  6. ATORVASTATIN [Concomitant]
  7. OMEPRAZOLE [Concomitant]
  8. NOVORAPID [Concomitant]

REACTIONS (1)
  - Lacunar infarction [Recovered/Resolved with Sequelae]
